FAERS Safety Report 8037794-2 (Version None)
Quarter: 2012Q1

REPORT INFORMATION
  Report Type: 
  Country: None (occurrence: None)
  Receive Date: 20120111
  Receipt Date: 20120104
  Transmission Date: 20120608
  Serious: Yes (Hospitalization)
  Sender: FDA-Public Use
  Company Number: FR-ASTRAZENECA-2011SE78759

PATIENT
  Age: 60 Year
  Sex: Male

DRUGS (5)
  1. QUETIAPINE FUMARATE [Suspect]
     Route: 048
     Dates: start: 20111219, end: 20111223
  2. THERALITE [Concomitant]
     Indication: PSYCHOTIC DISORDER
     Dates: end: 20111223
  3. TRANXENE [Concomitant]
     Indication: PSYCHOTIC DISORDER
     Dates: end: 20111223
  4. NOZINAN [Concomitant]
     Indication: PSYCHOTIC DISORDER
     Dates: end: 20111223
  5. QUETIAPINE FUMARATE [Suspect]
     Indication: PSYCHOTIC DISORDER
     Route: 048
     Dates: start: 20111213, end: 20111218

REACTIONS (3)
  - HYPOTENSION [None]
  - HYPOTHERMIA [None]
  - PROSTATITIS [None]
